FAERS Safety Report 9648935 (Version 1)
Quarter: 2013Q4

REPORT INFORMATION
  Report Type: Report from Study
  Country: US (occurrence: US)
  Receive Date: 20131028
  Receipt Date: 20131028
  Transmission Date: 20140711
  Serious: Yes (Death)
  Sender: FDA-Public Use
  Company Number: US-ASTRAZENECA-2013SE78784

PATIENT
  Sex: Male

DRUGS (1)
  1. SYMBICORT [Suspect]
     Indication: ASBESTOSIS
     Dosage: 160/4.5, UNKNOWN
     Route: 055

REACTIONS (2)
  - Death [Fatal]
  - Off label use [Unknown]
